FAERS Safety Report 19363141 (Version 1)
Quarter: 2021Q2

REPORT INFORMATION
  Report Type: Spontaneous
  Country: GB (occurrence: GB)
  Receive Date: 20210603
  Receipt Date: 20210603
  Transmission Date: 20210717
  Serious: Yes (Life-Threatening, Other)
  Sender: FDA-Public Use
  Company Number: GB-ACCORD-226537

PATIENT
  Age: 53 Year
  Sex: Male

DRUGS (8)
  1. CAPECITABINE. [Suspect]
     Active Substance: CAPECITABINE
     Indication: PALLIATIVE CARE
     Route: 048
  2. LOPERAMIDE [Concomitant]
     Active Substance: LOPERAMIDE
     Indication: DIARRHOEA
     Dosage: 2 CAPSULES FOUR TIMES DAILY FOR LOOSE STOOLS
     Dates: start: 20210331
  3. FENTANYL. [Concomitant]
     Active Substance: FENTANYL
     Dosage: APPLY ONE EVERY 3 DAYS (12MICROGRAMS/HOUR)
     Route: 062
     Dates: start: 20210318
  4. FENTANYL. [Concomitant]
     Active Substance: FENTANYL
     Dosage: APPLY ONE EVERY 3 DAYS (12MICROGRAMS/HOUR)
     Route: 062
     Dates: start: 20210406
  5. CODEINE PHOSPHATE/PARACETAMOL [Concomitant]
     Active Substance: ACETAMINOPHEN\CODEINE PHOSPHATE
     Dosage: 1?2 TABLETS UP TO FOUR TIMES DAILY (30MG/500MG)
     Dates: start: 20210219
  6. LOPERAMIDE [Concomitant]
     Active Substance: LOPERAMIDE
     Indication: DIARRHOEA
     Dosage: 2 CAPSULES FOUR TIMES DAILY FOR LOOSE STOOLS
     Dates: start: 20210324
  7. LOPERAMIDE [Concomitant]
     Active Substance: LOPERAMIDE
     Indication: DIARRHOEA
     Dosage: 2 CAPSULES FOUR TIMES DAILY FOR LOOSE STOOLS
     Dates: start: 20210423
  8. FENTANYL. [Concomitant]
     Active Substance: FENTANYL
     Dosage: APPLY ONE EVERY 3 DAYS (12MICROGRAMS/HOUR)
     Route: 062
     Dates: start: 20210416

REACTIONS (1)
  - Arteriospasm coronary [Recovered/Resolved]

NARRATIVE: CASE EVENT DATE: 20210505
